FAERS Safety Report 5634305-3 (Version None)
Quarter: 2008Q1

REPORT INFORMATION
  Report Type: 
  Country: None (occurrence: None)
  Receive Date: 20080131
  Receipt Date: 20061229
  Transmission Date: 20080703
  Serious: Yes (Hospitalization, Other)
  Sender: FDA-Public Use
  Company Number: 2007BH000005

PATIENT
  Age: 34 Year
  Sex: Female

DRUGS (2)
  1. DIANEAL [Suspect]
     Indication: PERITONEAL DIALYSIS
     Dosage: 2 L
  2. EXTRANEAL [Suspect]
     Indication: PERITONEAL DIALYSIS

REACTIONS (1)
  - PERITONITIS BACTERIAL [None]
